FAERS Safety Report 7161904-2 (Version None)
Quarter: 2010Q4

REPORT INFORMATION
  Report Type: 
  Country: None (occurrence: None)
  Receive Date: 20101215
  Receipt Date: 20100716
  Transmission Date: 20110411
  Serious: Yes (Other)
  Sender: FDA-Public Use
  Company Number: US-PFIZER INC-2010089309

PATIENT
  Sex: Female
  Weight: 49.887 kg

DRUGS (11)
  1. LYRICA [Interacting]
     Indication: FIBROMYALGIA
     Dosage: UNK
     Route: 048
     Dates: start: 20081101, end: 20090101
  2. NORVASC [Interacting]
     Indication: CARDIAC DISORDER
     Dosage: 10 MG, 1X/DAY
     Route: 048
     Dates: start: 19991201, end: 20091201
  3. ZOLOFT [Interacting]
     Indication: DEPRESSION
     Dosage: UNK
     Route: 048
     Dates: end: 20100527
  4. CRESTOR [Interacting]
     Dosage: 10 MG, 1X/DAY
     Route: 048
     Dates: end: 20100527
  5. PREVACID [Interacting]
     Indication: ABDOMINAL DISCOMFORT
     Dosage: 30 MG, 1X/DAY
     Route: 048
     Dates: end: 20100527
  6. PLAVIX [Interacting]
     Indication: CARDIAC DISORDER
     Dosage: 120 MG, 1X/DAY
     Dates: start: 19990101, end: 20100527
  7. DURAGESIC-100 [Interacting]
     Indication: PAIN
     Dosage: 50 UNK
     Route: 062
  8. OXYCODONE AND ACETAMINOPHEN [Suspect]
     Indication: PAIN
     Dosage: 110 MG/325 MG
     Route: 048
  9. NOVOLOG [Concomitant]
     Indication: DIABETES MELLITUS
     Dosage: UNK MG, 3X/DAY
     Dates: start: 19880101
  10. LANTUS [Concomitant]
     Indication: DIABETES MELLITUS
     Dosage: 16 IU, 1X/DAY
  11. IMDUR [Concomitant]
     Indication: CARDIAC DISORDER
     Dosage: 120 MG, 1X/DAY
     Route: 048

REACTIONS (6)
  - BLISTER [None]
  - DRUG INEFFECTIVE [None]
  - DRUG INTERACTION [None]
  - ERYTHEMA [None]
  - PAIN IN EXTREMITY [None]
  - WOUND [None]
